FAERS Safety Report 9999344 (Version 1)
Quarter: 2014Q1

REPORT INFORMATION
  Report Type: Spontaneous
  Country: US (occurrence: None)
  Receive Date: 20140311
  Receipt Date: 20140311
  Transmission Date: 20141002
  Serious: Yes (Hospitalization)
  Sender: FDA-Public Use
  Company Number: None

PATIENT
  Age: 64 Year
  Sex: Female
  Weight: 77 kg

DRUGS (10)
  1. WARFARIN [Suspect]
     Indication: ATRIAL FIBRILLATION
     Dosage: 1 TO 1.5 TABLETS
     Route: 048
  2. WARFARIN [Suspect]
     Indication: DEEP VEIN THROMBOSIS
     Dosage: 1 TO 1.5 TABLETS
     Route: 048
  3. CARVEDILOL [Concomitant]
  4. CETIRIZINE [Concomitant]
  5. CHOLECALCIFEROL [Concomitant]
  6. LORAZEPAM [Concomitant]
  7. OMEPRAZOLE [Concomitant]
  8. QUETIAPINE [Concomitant]
  9. RIZATRIPTAN [Concomitant]
  10. VENLAFAXINE [Concomitant]

REACTIONS (1)
  - Haemorrhagic diathesis [None]
